FAERS Safety Report 7542257-4 (Version None)
Quarter: 2011Q2

REPORT INFORMATION
  Report Type: 
  Country: None (occurrence: None)
  Receive Date: 20110613
  Receipt Date: 20110612
  Transmission Date: 20111010
  Serious: Yes (Other)
  Sender: FDA-Public Use
  Company Number: EG-PFIZER INC-2011127788

PATIENT
  Age: 33 Year
  Sex: Male

DRUGS (1)
  1. VARENICLINE TARTRATE [Suspect]
     Indication: SMOKING CESSATION THERAPY
     Dosage: UNK
     Route: 048

REACTIONS (8)
  - ENCEPHALITIS MENINGOCOCCAL [None]
  - CONSTIPATION [None]
  - CHOROIDITIS [None]
  - PYREXIA [None]
  - MONONEURITIS [None]
  - MYOSITIS [None]
  - HEPATOMEGALY [None]
  - NASOPHARYNGITIS [None]
